FAERS Safety Report 19897341 (Version 1)
Quarter: 2021Q3

REPORT INFORMATION
  Report Type: Spontaneous
  Country: US (occurrence: US)
  Receive Date: 20210930
  Receipt Date: 20210930
  Transmission Date: 20211014
  Serious: Yes (Hospitalization, Other)
  Sender: FDA-Public Use
  Company Number: US-SA-2021SA320678

PATIENT

DRUGS (1)
  1. PLAVIX [Suspect]
     Active Substance: CLOPIDOGREL BISULFATE
     Dosage: UNK
     Route: 065

REACTIONS (9)
  - Embolism [Recovered/Resolved]
  - Hypotension [Recovered/Resolved]
  - Urinary tract infection [Recovered/Resolved]
  - Haematuria [Recovered/Resolved]
  - Arrhythmia [Recovered/Resolved]
  - Deep vein thrombosis [Not Recovered/Not Resolved]
  - Renal tubular necrosis [Recovered/Resolved]
  - Pseudomonal bacteraemia [Recovered/Resolved]
  - Heterophoria [Recovered/Resolved]

NARRATIVE: CASE EVENT DATE: 20210804
